FAERS Safety Report 4910088-7 (Version None)
Quarter: 2006Q1

REPORT INFORMATION
  Report Type: 
  Country: None (occurrence: None)
  Receive Date: 20060209
  Receipt Date: 20060126
  Transmission Date: 20060701
  Serious: Yes (Hospitalization)
  Sender: FDA-Public Use
  Company Number: US200511000045

PATIENT
  Age: 58 Year
  Sex: Female

DRUGS (6)
  1. HUMATROPE [Suspect]
     Indication: HORMONE REPLACEMENT THERAPY
     Dosage: 0.2 MG, DAILY (1/D),
     Dates: start: 20050926, end: 20051029
  2. HUMATROPE [Suspect]
     Indication: HORMONE REPLACEMENT THERAPY
     Dosage: 0.2 MG, DAILY (1/D),
     Dates: start: 20050101
  3. HUMATROPEN [Concomitant]
  4. BYETTA [Concomitant]
  5. METFORMIN [Concomitant]
  6. LANTUS [Concomitant]

REACTIONS (5)
  - DIZZINESS [None]
  - FALL [None]
  - FATIGUE [None]
  - IMPAIRED HEALING [None]
  - PHARMACEUTICAL PRODUCT COMPLAINT [None]
